FAERS Safety Report 5725377-6 (Version None)
Quarter: 2008Q2

REPORT INFORMATION
  Report Type: 
  Country: None (occurrence: None)
  Receive Date: 20080501
  Receipt Date: 20080425
  Transmission Date: 20081010
  Serious: Yes (Other)
  Sender: FDA-Public Use
  Company Number: US-PFIZER INC-2008036453

PATIENT
  Sex: Female
  Weight: 53.5 kg

DRUGS (37)
  1. LIPITOR [Suspect]
     Indication: BLOOD CHOLESTEROL INCREASED
  2. WELLBUTRIN [Concomitant]
  3. PROZAC [Concomitant]
  4. TOPAMAX [Concomitant]
  5. LITHIUM CARBONATE [Concomitant]
  6. LITHIUM CARBONATE [Concomitant]
  7. ANTIPSYCHOTICS [Concomitant]
  8. ANTIPSYCHOTICS [Concomitant]
  9. LEVOXYL [Concomitant]
  10. LEVOXYL [Concomitant]
  11. ABILIFY [Concomitant]
  12. ABILIFY [Concomitant]
  13. ALL OTHER THERAPEUTIC PRODUCTS [Concomitant]
  14. ALL OTHER THERAPEUTIC PRODUCTS [Concomitant]
  15. TRAMADOL HCL [Concomitant]
  16. TRAMADOL HCL [Concomitant]
  17. LORAZEPAM [Concomitant]
  18. LORAZEPAM [Concomitant]
  19. FLOVENT [Concomitant]
     Route: 055
  20. FLOVENT [Concomitant]
  21. ALBUTEROL [Concomitant]
  22. ALBUTEROL [Concomitant]
  23. SALMETEROL XINAFOATE [Concomitant]
  24. SALMETEROL XINAFOATE [Concomitant]
  25. VERAMYST [Concomitant]
  26. VERAMYST [Concomitant]
  27. ZYRTEC [Concomitant]
  28. ZYRTEC [Concomitant]
  29. VITAMIN CAP [Concomitant]
  30. VITAMIN CAP [Concomitant]
  31. FISH OIL [Concomitant]
  32. FISH OIL [Concomitant]
  33. CALCIUM [Concomitant]
  34. CALCIUM [Concomitant]
  35. GINKO BILOBA [Concomitant]
  36. ALL OTHER THERAPEUTIC PRODUCTS [Concomitant]
  37. BISACODYL [Concomitant]

REACTIONS (2)
  - GAIT DISTURBANCE [None]
  - MYALGIA [None]
